FAERS Safety Report 18024900 (Version 2)
Quarter: 2020Q3

REPORT INFORMATION
  Report Type: Report from Study
  Country: US (occurrence: US)
  Receive Date: 20200715
  Receipt Date: 20200724
  Transmission Date: 20201103
  Serious: No
  Sender: FDA-Public Use
  Company Number: US-GLAXOSMITHKLINE-US2020AMR130634

PATIENT
  Sex: Female

DRUGS (2)
  1. NIRAPARIB [Suspect]
     Active Substance: NIRAPARIB
     Indication: OVARIAN CANCER
     Dosage: 100 MG, QD
     Dates: start: 20200707, end: 20200715
  2. NIRAPARIB [Suspect]
     Active Substance: NIRAPARIB
     Dosage: 100 MG, QD
     Dates: start: 20200717

REACTIONS (6)
  - Fatigue [Not Recovered/Not Resolved]
  - Headache [Unknown]
  - Off label use [Unknown]
  - Blood pressure increased [Unknown]
  - Photosensitivity reaction [Unknown]
  - Nausea [Unknown]
